FAERS Safety Report 8458585-4 (Version None)
Quarter: 2012Q2

REPORT INFORMATION
  Report Type: 
  Country: None (occurrence: None)
  Receive Date: 20120615
  Receipt Date: 20120531
  Transmission Date: 20120825
  Serious: Yes (Other)
  Sender: FDA-Public Use
  Company Number: 2012-00873

PATIENT
  Sex: Female

DRUGS (3)
  1. PHENYTOIN [Concomitant]
  2. LAMOTRGINE [Suspect]
     Indication: EPILEPSY
     Dosage: 400 MG (200 MG,2 IN 1 D)
  3. CITALOPRAM HYDROBROMIDE [Suspect]
     Indication: DEPRESSION
     Dosage: 20 MG (20 MG,1 IN 1 D)

REACTIONS (4)
  - EPILEPSY [None]
  - DRUG INTERACTION [None]
  - CONDITION AGGRAVATED [None]
  - DEPRESSION [None]
